FAERS Safety Report 24438152 (Version 1)
Quarter: 2024Q4

REPORT INFORMATION
  Report Type: Spontaneous
  Country: US (occurrence: US)
  Receive Date: 20241015
  Receipt Date: 20241015
  Transmission Date: 20250115
  Serious: No
  Sender: GLAND PHARMA LTD
  Company Number: US-GLANDPHARMA-US-2024GLNSPO00844

PATIENT

DRUGS (1)
  1. PACLITAXEL [Suspect]
     Active Substance: PACLITAXEL
     Indication: Product used for unknown indication
     Route: 065

REACTIONS (1)
  - Epistaxis [Unknown]
